FAERS Safety Report 8589684-4 (Version None)
Quarter: 2012Q3

REPORT INFORMATION
  Report Type: 
  Country: None (occurrence: None)
  Receive Date: 20120813
  Receipt Date: 20120730
  Transmission Date: 20120928
  Serious: Yes (Hospitalization)
  Sender: FDA-Public Use
  Company Number: NZ-MYLANLABS-2012S1015827

PATIENT
  Age: 41 Year
  Sex: Male

DRUGS (4)
  1. MESNA [Suspect]
     Indication: CYSTITIS HAEMORRHAGIC
     Route: 065
  2. PREDNISONE TAB [Concomitant]
     Dosage: 15MG DAILY
     Route: 065
  3. CYCLOPHOSPHAMIDE [Suspect]
     Indication: WEGENER'S GRANULOMATOSIS
     Dosage: 150MG DAILY
     Route: 065
  4. CALCIUM [Concomitant]
     Route: 065

REACTIONS (3)
  - PHOTODERMATOSIS [None]
  - PANCYTOPENIA [None]
  - NORMOCHROMIC NORMOCYTIC ANAEMIA [None]
